FAERS Safety Report 6961103-0 (Version None)
Quarter: 2010Q3

REPORT INFORMATION
  Report Type: 
  Country: None (occurrence: None)
  Receive Date: 20100901
  Receipt Date: 20100823
  Transmission Date: 20110219
  Serious: Yes (Hospitalization, Other)
  Sender: FDA-Public Use
  Company Number: JP-MILLENNIUM PHARMACEUTICALS, INC.-2010-04528

PATIENT

DRUGS (8)
  1. VELCADE [Suspect]
     Indication: MULTIPLE MYELOMA
     Dosage: 2.28 MG, UNK
     Route: 042
     Dates: start: 20100319, end: 20100329
  2. VELCADE [Suspect]
     Dosage: 1.72 MG, UNK
     Route: 042
     Dates: start: 20100416, end: 20100426
  3. VELCADE [Suspect]
     Dosage: 1.7 MG, UNK
     Route: 042
     Dates: start: 20100521, end: 20100531
  4. VELCADE [Suspect]
     Dosage: 1.68 MG, UNK
     Route: 042
     Dates: start: 20100625, end: 20100806
  5. VORINOSTAT [Suspect]
     Indication: MULTIPLE MYELOMA
     Dosage: 400 MG, UNK
     Route: 048
     Dates: start: 20100222, end: 20100429
  6. VORINOSTAT [Suspect]
     Dosage: 300 MG, UNK
     Route: 048
     Dates: start: 20100521, end: 20100808
  7. GASTER D [Concomitant]
     Indication: PROPHYLAXIS
     Dosage: 10 MG, UNK
     Route: 048
     Dates: start: 20061016, end: 20100809
  8. LOXONIN                            /00890701/ [Concomitant]
     Indication: OSTEOARTHRITIS
     Dosage: 60 MG, UNK
     Route: 048
     Dates: start: 20061016

REACTIONS (15)
  - ANAEMIA [None]
  - BLOOD CREATINE INCREASED [None]
  - DECREASED APPETITE [None]
  - ELECTROCARDIOGRAM ST SEGMENT DEPRESSION [None]
  - FATIGUE [None]
  - HEPATIC FUNCTION ABNORMAL [None]
  - HYPOAESTHESIA [None]
  - HYPOALBUMINAEMIA [None]
  - HYPOKALAEMIA [None]
  - LEUKOPENIA [None]
  - LYMPHOPENIA [None]
  - NAUSEA [None]
  - PNEUMONIA [None]
  - THROMBOCYTOPENIA [None]
  - WEIGHT DECREASED [None]
